FAERS Safety Report 10593602 (Version 1)
Quarter: 2014Q4

REPORT INFORMATION
  Report Type: Report from Study
  Country: CO (occurrence: CO)
  Receive Date: 20141119
  Receipt Date: 20141119
  Transmission Date: 20150529
  Serious: Yes (Other)
  Sender: FDA-Public Use
  Company Number: CO-ABBVIE-14K-036-1309667-00

PATIENT
  Age: 49 Year
  Sex: Female
  Weight: 47 kg

DRUGS (4)
  1. FISOPRED [Concomitant]
     Active Substance: PREDNISOLONE 21-PHOSPHATE
     Indication: PRODUCT USED FOR UNKNOWN INDICATION
  2. HUMIRA [Suspect]
     Active Substance: ADALIMUMAB
     Indication: RHEUMATOID ARTHRITIS
     Route: 058
     Dates: start: 20130322, end: 20141002
  3. NAPRUX [Concomitant]
     Indication: PRODUCT USED FOR UNKNOWN INDICATION
  4. ARAVA [Concomitant]
     Active Substance: LEFLUNOMIDE
     Indication: PRODUCT USED FOR UNKNOWN INDICATION

REACTIONS (1)
  - Oral discomfort [Recovering/Resolving]

NARRATIVE: CASE EVENT DATE: 20141011
